FAERS Safety Report 20063195 (Version 1)
Quarter: 2021Q4

REPORT INFORMATION
  Report Type: Spontaneous
  Country: US (occurrence: None)
  Receive Date: 20211111
  Receipt Date: 20211111
  Transmission Date: 20220303
  Serious: No
  Sender: FDA-Public Use
  Company Number: None

PATIENT
  Age: 55 Year
  Sex: Female

DRUGS (1)
  1. ESTRADIOL [Suspect]
     Active Substance: ESTRADIOL
     Indication: Menopausal symptoms
     Dosage: FREQUENCY : DAILY;?
     Route: 062

REACTIONS (2)
  - Therapeutic product effect decreased [None]
  - Suspected product quality issue [None]

NARRATIVE: CASE EVENT DATE: 20211111
